FAERS Safety Report 16731244 (Version 1)
Quarter: 2019Q3

REPORT INFORMATION
  Report Type: Spontaneous
  Country: US (occurrence: US)
  Receive Date: 20190706
  Receipt Date: 20190706
  Transmission Date: 20191005
  Serious: Yes (Hospitalization)
  Sender: FDA-Public Use
  Company Number: None

PATIENT
  Age: 44 Year
  Sex: Female
  Weight: 89.4 kg

DRUGS (3)
  1. 5-FLUUROURACIL (5-FU) [Suspect]
     Active Substance: FLUOROURACIL
     Dates: end: 20190404
  2. LEUCOVORIN CALCIUM. [Suspect]
     Active Substance: LEUCOVORIN CALCIUM
     Dates: end: 20190402
  3. ELOXATIN [Suspect]
     Active Substance: OXALIPLATIN
     Dates: end: 20190402

REACTIONS (9)
  - Acidosis [None]
  - Sepsis [None]
  - Vaginal haemorrhage [None]
  - Vaginal prolapse [None]
  - Intra-abdominal fluid collection [None]
  - Nausea [None]
  - Abdominal abscess [None]
  - Blood lactic acid increased [None]
  - Abdominal pain [None]

NARRATIVE: CASE EVENT DATE: 20190614
